FAERS Safety Report 7270194-1 (Version None)
Quarter: 2011Q1

REPORT INFORMATION
  Report Type: 
  Country: None (occurrence: None)
  Receive Date: 20110202
  Receipt Date: 20110120
  Transmission Date: 20110831
  Serious: Yes (Hospitalization)
  Sender: FDA-Public Use
  Company Number: FR-ELI_LILLY_AND_COMPANY-FR201101005129

PATIENT
  Age: 75 Year
  Sex: Male

DRUGS (1)
  1. CYMBALTA [Suspect]
     Dosage: 30 MG, DAILY (1/D)
     Route: 048

REACTIONS (4)
  - POTENTIATING DRUG INTERACTION [None]
  - PARAESTHESIA [None]
  - HOSPITALISATION [None]
  - INFECTION [None]
